FAERS Safety Report 7583747-8 (Version None)
Quarter: 2011Q2

REPORT INFORMATION
  Report Type: 
  Country: None (occurrence: None)
  Receive Date: 20110531
  Receipt Date: 20101202
  Transmission Date: 20111010
  Serious: Yes (Other)
  Sender: FDA-Public Use
  Company Number: 319483

PATIENT
  Age: 17 Year
  Sex: Male
  Weight: 116.1 kg

DRUGS (9)
  1. DOCUSATE SODIUM (DOCUSATE SODIUM) [Concomitant]
  2. HYDROCORTISON /00028601/ (HYDROCORTISONE) [Concomitant]
  3. ACETAMINOPHEN [Concomitant]
  4. LORATADINE [Concomitant]
  5. LANSOPRAZOLE [Concomitant]
  6. ADVAIR HFA [Concomitant]
  7. NORDITROPIN FLEXPRO [Suspect]
     Indication: PRODUCT USED FOR UNKNOWN INDICATION
     Dosage: SUBCUTANEOUS
     Route: 058
     Dates: start: 20101119, end: 20101129
  8. LEVOTHYROXINE SODIUM [Concomitant]
  9. DDAVP /00361901/ (DESMOPRESSIN) [Concomitant]

REACTIONS (1)
  - HEADACHE [None]
